FAERS Safety Report 10125794 (Version 1)
Quarter: 2014Q2

REPORT INFORMATION
  Report Type: Spontaneous
  Country: GB (occurrence: GB)
  Receive Date: 20140425
  Receipt Date: 20140425
  Transmission Date: 20141212
  Serious: Yes (Other)
  Sender: FDA-Public Use
  Company Number: GB-WATSON-2014-08033

PATIENT
  Age: 37 Year
  Sex: Female

DRUGS (1)
  1. LABETALOL (UNKNOWN) [Suspect]
     Indication: GESTATIONAL HYPERTENSION
     Dosage: 100 MG, BID; STARTING FROM 34 WEEKS GESTATION
     Route: 065

REACTIONS (3)
  - Raynaud^s phenomenon [Recovered/Resolved]
  - Maternal exposure during pregnancy [Recovered/Resolved]
  - Exposure during breast feeding [Recovered/Resolved]
